FAERS Safety Report 11933150 (Version 2)
Quarter: 2016Q1

REPORT INFORMATION
  Report Type: Spontaneous
  Country: GB (occurrence: GB)
  Receive Date: 20160121
  Receipt Date: 20160205
  Transmission Date: 20160526
  Serious: Yes (Other)
  Sender: FDA-Public Use
  Company Number: GB-AMGEN-GBRSP2015138707

PATIENT
  Age: 70 Year
  Sex: Female

DRUGS (2)
  1. LEFLUNOMIDE. [Concomitant]
     Active Substance: LEFLUNOMIDE
     Dosage: 20 MG, 1X/DAY
  2. ENBREL [Suspect]
     Active Substance: ETANERCEPT
     Indication: RHEUMATOID ARTHRITIS
     Dosage: 50 MG, WEEKLY
     Route: 058
     Dates: start: 20151203, end: 20160114

REACTIONS (7)
  - Haemorrhage [Unknown]
  - Osteoarthritis [Unknown]
  - Erythema [Unknown]
  - Tearfulness [Unknown]
  - Pruritus [Unknown]
  - Scab [Unknown]
  - Back pain [Unknown]

NARRATIVE: CASE EVENT DATE: 201512
